FAERS Safety Report 8557884-5 (Version None)
Quarter: 2012Q3

REPORT INFORMATION
  Report Type: 
  Country: None (occurrence: None)
  Receive Date: 20120801
  Receipt Date: 20120723
  Transmission Date: 20120928
  Serious: Yes (Hospitalization)
  Sender: FDA-Public Use
  Company Number: BR-ASTRAZENECA-2011SE31419

PATIENT
  Age: 82 Year
  Sex: Female
  Weight: 62 kg

DRUGS (6)
  1. METOPROLOL SUCCINATE [Suspect]
     Indication: HYPERTENSION
     Route: 048
     Dates: start: 20110101, end: 20120401
  2. ANTIHYPERTENSIVES [Concomitant]
     Indication: HYPERTENSION
     Route: 048
     Dates: start: 20110101
  3. ATACAND [Suspect]
     Indication: HYPERTENSION
     Route: 048
     Dates: start: 20110101, end: 20110501
  4. ATACAND [Suspect]
     Route: 048
     Dates: start: 20120401
  5. ATACAND HCT [Suspect]
     Indication: HYPERTENSION
     Dosage: 16/2.5 MG DAILY
     Route: 048
     Dates: start: 20110501, end: 20120401
  6. METOPROLOL SUCCINATE [Suspect]
     Route: 048
     Dates: start: 20120401

REACTIONS (6)
  - OEDEMA PERIPHERAL [None]
  - FATIGUE [None]
  - CORONARY ARTERY OCCLUSION [None]
  - BRONCHOSPASM [None]
  - DRUG ADMINISTRATION ERROR [None]
  - DIZZINESS [None]
